FAERS Safety Report 9140120 (Version 1)
Quarter: 2013Q1

REPORT INFORMATION
  Report Type: Spontaneous
  Country: AU (occurrence: AU)
  Receive Date: 20130305
  Receipt Date: 20130305
  Transmission Date: 20140127
  Serious: Yes (Hospitalization, Other)
  Sender: FDA-Public Use
  Company Number: PHHY2013AU020172

PATIENT
  Age: 84 Year
  Sex: Male

DRUGS (12)
  1. COLCHICINE [Suspect]
     Indication: GOUT
     Dosage: 1 MG, UNK
  2. COLCHICINE [Interacting]
     Dosage: 0.5 MG, UNK
  3. SIMVASTATIN [Interacting]
     Dosage: 40 MG, UNK
  4. PREDNISOLONE [Concomitant]
     Indication: ASTHMA
     Dosage: 5 MG, UNK
  5. FLUTICASONE W/SALMETEROL [Concomitant]
     Indication: ASTHMA
     Route: 055
  6. EZETIMIBE [Concomitant]
     Dosage: 20 MG, UNK
  7. AMLODIPINE [Concomitant]
  8. IRBESARTAN [Concomitant]
  9. HYDROCHLOROTHIAZIDE [Concomitant]
  10. CLOPIDOGREL [Concomitant]
  11. RABEPRAZOLE [Concomitant]
  12. OXYCODONE [Concomitant]

REACTIONS (8)
  - Colonic pseudo-obstruction [Recovered/Resolved]
  - Myoglobinuria [Recovered/Resolved]
  - Dysphagia [Recovered/Resolved]
  - Myopathy [Recovered/Resolved]
  - Myalgia [Recovered/Resolved]
  - Muscular weakness [Recovered/Resolved]
  - Blood creatine phosphokinase increased [Recovered/Resolved]
  - Drug interaction [Recovered/Resolved]
